FAERS Safety Report 10683604 (Version 2)
Quarter: 2014Q4

REPORT INFORMATION
  Report Type: Spontaneous
  Country: JP (occurrence: JP)
  Receive Date: 20141230
  Receipt Date: 20141230
  Transmission Date: 20150529
  Serious: Yes (Other)
  Sender: FDA-Public Use
  Company Number: JP-ASTRAZENECA-2014SE89946

PATIENT
  Sex: Female
  Weight: 75 kg

DRUGS (7)
  1. SEVOFLURANE. [Concomitant]
     Active Substance: SEVOFLURANE
     Dosage: DOSE UNKNOWN
     Route: 055
  2. ATVAGOREVERSE [Concomitant]
     Dosage: DOSE UNKNOWN
     Route: 065
  3. ANAPEINE [Suspect]
     Active Substance: ROPIVACAINE HYDROCHLORIDE
     Indication: NERVE BLOCK
     Route: 053
     Dates: start: 20141114, end: 20141114
  4. ESLAX [Concomitant]
     Active Substance: ROCURONIUM BROMIDE
     Indication: GENERAL ANAESTHESIA
     Dosage: DOSE UNKNOWN
     Route: 065
  5. ULTIVA [Concomitant]
     Active Substance: REMIFENTANIL HYDROCHLORIDE
     Indication: GENERAL ANAESTHESIA
     Dosage: DOSE UNKNOWN
     Route: 065
  6. FENTANYL CITRATE. [Concomitant]
     Active Substance: FENTANYL CITRATE
     Indication: GENERAL ANAESTHESIA
     Dosage: DOSE UNKNOWN
     Route: 065
  7. PROPOFOL. [Concomitant]
     Active Substance: PROPOFOL
     Indication: GENERAL ANAESTHESIA
     Dosage: DOSE UNKNOWN
     Route: 065

REACTIONS (2)
  - Depressed level of consciousness [Recovered/Resolved]
  - Toxicity to various agents [Recovered/Resolved]

NARRATIVE: CASE EVENT DATE: 20141114
